FAERS Safety Report 6436464-1 (Version None)
Quarter: 2009Q4

REPORT INFORMATION
  Report Type: 
  Country: None (occurrence: None)
  Receive Date: 20091111
  Receipt Date: 20091104
  Transmission Date: 20100525
  Serious: Yes (Other)
  Sender: FDA-Public Use
  Company Number: GB-TEVA-214413ISR

PATIENT
  Sex: Male

DRUGS (4)
  1. LAMOTRIGINE [Suspect]
  2. VALPROIC ACID [Suspect]
  3. TOPIRAMATE [Suspect]
  4. CLOBAZAM [Suspect]

REACTIONS (2)
  - DRUG EXPOSURE DURING PREGNANCY [None]
  - HYPOSPADIAS [None]
